FAERS Safety Report 8127592-3 (Version None)
Quarter: 2012Q1

REPORT INFORMATION
  Report Type: 
  Country: None (occurrence: None)
  Receive Date: 20120210
  Receipt Date: 20120203
  Transmission Date: 20120608
  Serious: No
  Sender: FDA-Public Use
  Company Number: US-JNJFOC-20120205135

PATIENT
  Sex: Female

DRUGS (1)
  1. DURAGESIC-100 [Suspect]
     Indication: PAIN
     Route: 062

REACTIONS (3)
  - INCORRECT DRUG ADMINISTRATION DURATION [None]
  - PAIN [None]
  - PRODUCT QUALITY ISSUE [None]
